FAERS Safety Report 26011597 (Version 1)
Quarter: 2025Q4

REPORT INFORMATION
  Report Type: Spontaneous
  Country: US (occurrence: US)
  Receive Date: 20251107
  Receipt Date: 20251107
  Transmission Date: 20260118
  Serious: Yes (Other)
  Sender: Invivyd
  Company Number: US-INVIVYD-US-INV-25-000306

PATIENT

DRUGS (3)
  1. PEMGARDA [Suspect]
     Active Substance: PEMIVIBART
     Indication: Product used for unknown indication
     Dosage: UNK
     Route: 042
  2. PEMGARDA [Suspect]
     Active Substance: PEMIVIBART
     Dosage: UNK
     Route: 042
  3. METHYLPREDNISOLONE [Concomitant]
     Active Substance: METHYLPREDNISOLONE
     Indication: Premedication
     Route: 065

REACTIONS (6)
  - Pharyngeal swelling [Recovered/Resolved]
  - Circumoral oedema [Recovered/Resolved]
  - Rash [Recovered/Resolved]
  - Urticaria [Recovered/Resolved]
  - Erythema [Recovered/Resolved]
  - Pruritus [Recovered/Resolved]
